FAERS Safety Report 4325590-9 (Version None)
Quarter: 2004Q1

REPORT INFORMATION
  Report Type: 
  Country: None (occurrence: None)
  Receive Date: 20040324
  Receipt Date: 20040308
  Transmission Date: 20041129
  Serious: Yes (Hospitalization, Other)
  Sender: FDA-Public Use
  Company Number: USA040361274

PATIENT
  Age: 39 Year
  Sex: Female
  Weight: 57 kg

DRUGS (4)
  1. PROZAC [Suspect]
     Indication: ANXIETY
     Dosage: 40 MG/1 DAY
     Dates: start: 19950101
  2. PROZAC [Suspect]
     Indication: DEPRESSION
     Dosage: 40 MG/1 DAY
     Dates: start: 19950101
  3. ROBAXIN [Concomitant]
  4. DARVOCET-N 100 [Concomitant]

REACTIONS (7)
  - ANXIETY [None]
  - FUNGAL INFECTION [None]
  - HEPATOCELLULAR DAMAGE [None]
  - IMPAIRED WORK ABILITY [None]
  - LOSS OF EMPLOYMENT [None]
  - MENTAL DISORDER [None]
  - SELF-MEDICATION [None]
